FAERS Safety Report 9958670 (Version 1)
Quarter: 2014Q1

REPORT INFORMATION
  Report Type: Spontaneous
  Country: US (occurrence: US)
  Receive Date: 20140305
  Receipt Date: 20140305
  Transmission Date: 20141002
  Serious: No
  Sender: FDA-Public Use
  Company Number: US-009507513-1402USA012204

PATIENT
  Sex: 0

DRUGS (1)
  1. IMPLANON [Suspect]
     Dosage: CONCENTRATION 68 MG, UNK
     Route: 059
     Dates: start: 201102, end: 2014

REACTIONS (1)
  - Device deployment issue [Recovered/Resolved]
